FAERS Safety Report 20919154 (Version 1)
Quarter: 2022Q2

REPORT INFORMATION
  Report Type: Spontaneous
  Country: GB (occurrence: GB)
  Receive Date: 20220606
  Receipt Date: 20220606
  Transmission Date: 20220721
  Serious: Yes (Life-Threatening, Hospitalization, Other)
  Sender: FDA-Public Use
  Company Number: GB-LUPIN PHARMACEUTICALS INC.-2022-08001

PATIENT
  Age: 31 Year
  Sex: Male

DRUGS (21)
  1. ATORVASTATIN CALCIUM [Suspect]
     Active Substance: ATORVASTATIN CALCIUM
     Indication: Ventricular fibrillation
     Dosage: 40 MG
     Route: 065
  2. ATORVASTATIN CALCIUM [Suspect]
     Active Substance: ATORVASTATIN CALCIUM
     Indication: Cardiac arrest
  3. ATORVASTATIN CALCIUM [Suspect]
     Active Substance: ATORVASTATIN CALCIUM
     Indication: Myocardial bridging
  4. ASPIRIN [Suspect]
     Active Substance: ASPIRIN
     Indication: Ventricular fibrillation
     Dosage: 75 MG
     Route: 065
  5. ASPIRIN [Suspect]
     Active Substance: ASPIRIN
     Indication: Cardiac arrest
  6. ASPIRIN [Suspect]
     Active Substance: ASPIRIN
     Indication: Myocardial bridging
  7. BISOPROLOL [Suspect]
     Active Substance: BISOPROLOL
     Indication: Ventricular fibrillation
     Dosage: 2.5 MG
     Route: 065
  8. BISOPROLOL [Suspect]
     Active Substance: BISOPROLOL
     Indication: Cardiac arrest
     Dosage: 5 MG
     Route: 065
  9. BISOPROLOL [Suspect]
     Active Substance: BISOPROLOL
     Indication: Myocardial bridging
  10. IVABRADINE [Suspect]
     Active Substance: IVABRADINE
     Indication: Ventricular fibrillation
     Dosage: 5 MG, BID
     Route: 065
  11. IVABRADINE [Suspect]
     Active Substance: IVABRADINE
     Indication: Cardiac arrest
  12. IVABRADINE [Suspect]
     Active Substance: IVABRADINE
     Indication: Myocardial bridging
  13. AMLODIPINE [Concomitant]
     Active Substance: AMLODIPINE BESYLATE
     Indication: Ventricular fibrillation
     Dosage: 5 MG
     Route: 065
  14. AMLODIPINE [Concomitant]
     Active Substance: AMLODIPINE BESYLATE
     Indication: Cardiac arrest
     Dosage: 20 MG
     Route: 065
  15. AMLODIPINE [Concomitant]
     Active Substance: AMLODIPINE BESYLATE
     Indication: Myocardial bridging
  16. ISOSORBIDE MONONITRATE [Concomitant]
     Active Substance: ISOSORBIDE MONONITRATE
     Indication: Ventricular fibrillation
     Dosage: 30 MG
     Route: 065
  17. ISOSORBIDE MONONITRATE [Concomitant]
     Active Substance: ISOSORBIDE MONONITRATE
     Indication: Cardiac arrest
  18. ISOSORBIDE MONONITRATE [Concomitant]
     Active Substance: ISOSORBIDE MONONITRATE
     Indication: Myocardial bridging
  19. DILTIAZEM [Concomitant]
     Active Substance: DILTIAZEM
     Indication: Ventricular fibrillation
     Dosage: 360 MG
     Route: 065
  20. DILTIAZEM [Concomitant]
     Active Substance: DILTIAZEM
     Indication: Cardiac arrest
  21. DILTIAZEM [Concomitant]
     Active Substance: DILTIAZEM
     Indication: Myocardial bridging

REACTIONS (2)
  - Drug ineffective for unapproved indication [Unknown]
  - Off label use [Unknown]
